FAERS Safety Report 5295955-X (Version None)
Quarter: 2007Q2

REPORT INFORMATION
  Report Type: 
  Country: None (occurrence: None)
  Receive Date: 20070413
  Receipt Date: 20070329
  Transmission Date: 20071010
  Serious: Yes (Other)
  Sender: FDA-Public Use
  Company Number: GB-NOVOPROD-261245

PATIENT
  Age: 42 Year
  Sex: Male

DRUGS (4)
  1. EXUBERA [Suspect]
     Indication: DIABETES MELLITUS
     Dates: start: 20070102
  2. PARACETAMOL [Concomitant]
  3. HUMALOG                            /00030501/ [Concomitant]
  4. ACTRAPID [Suspect]
     Dosage: NOT ADMINISTERED

REACTIONS (2)
  - CHEST PAIN [None]
  - DYSPNOEA [None]
